FAERS Safety Report 12497235 (Version 2)
Quarter: 2016Q3

REPORT INFORMATION
  Report Type: Spontaneous
  Country: GB (occurrence: GB)
  Receive Date: 20160624
  Receipt Date: 20160706
  Transmission Date: 20161109
  Serious: Yes (Hospitalization, Other)
  Sender: FDA-Public Use
  Company Number: GB-SA-2016SA114095

PATIENT
  Age: 30 Year
  Sex: Female

DRUGS (8)
  1. RIFAMPICIN [Interacting]
     Active Substance: RIFAMPIN
     Indication: SKIN DISORDER
     Route: 065
  2. AMISULPRIDE [Concomitant]
     Active Substance: AMISULPRIDE
     Indication: SCHIZOPHRENIA
  3. RIFAMPICIN [Suspect]
     Active Substance: RIFAMPIN
     Indication: ACNE
     Route: 065
  4. CLOZAPINE. [Interacting]
     Active Substance: CLOZAPINE
     Indication: SCHIZOPHRENIA
     Dosage: TAPER
     Route: 065
  5. CLOZAPINE. [Interacting]
     Active Substance: CLOZAPINE
     Indication: SCHIZOPHRENIA
     Dosage: TAPER
     Route: 065
  6. CLOZAPINE. [Interacting]
     Active Substance: CLOZAPINE
     Indication: SCHIZOPHRENIA
     Route: 065
  7. CLOZAPINE. [Interacting]
     Active Substance: CLOZAPINE
     Indication: SCHIZOPHRENIA
     Dosage: TAPER
     Route: 065
  8. CLOZAPINE. [Interacting]
     Active Substance: CLOZAPINE
     Indication: SCHIZOPHRENIA
     Dosage: TAPER
     Route: 065

REACTIONS (4)
  - Schizophrenia [Recovering/Resolving]
  - Antipsychotic drug level below therapeutic [Recovered/Resolved]
  - Drug interaction [Unknown]
  - Acute psychosis [Recovering/Resolving]
